FAERS Safety Report 12015471 (Version 1)
Quarter: 2016Q1

REPORT INFORMATION
  Report Type: Spontaneous
  Country: US (occurrence: US)
  Receive Date: 20160205
  Receipt Date: 20160205
  Transmission Date: 20160526
  Serious: No
  Sender: FDA-Public Use
  Company Number: US-AMGEN-USASP2015037786

PATIENT
  Age: 90 Year
  Sex: Male

DRUGS (1)
  1. NEULASTA [Suspect]
     Active Substance: PEGFILGRASTIM
     Indication: PRODUCT USED FOR UNKNOWN INDICATION
     Dosage: UNK
     Route: 065

REACTIONS (8)
  - Dizziness [Unknown]
  - Fatigue [Unknown]
  - Asthenia [Unknown]
  - Malaise [Unknown]
  - Pyrexia [Unknown]
  - Dehydration [Unknown]
  - Malnutrition [Unknown]
  - White blood cell count increased [Unknown]
